FAERS Safety Report 4559262-2 (Version None)
Quarter: 2005Q1

REPORT INFORMATION
  Report Type: 
  Country: None (occurrence: None)
  Receive Date: 20050124
  Receipt Date: 20041020
  Transmission Date: 20050727
  Serious: Yes (Life-Threatening, Hospitalization, Disabling)
  Sender: FDA-Public Use
  Company Number: DE-MERCK-0410DEU00621

PATIENT
  Age: 62 Year
  Sex: Male

DRUGS (5)
  1. VIOXX [Suspect]
     Indication: MUSCULOSKELETAL PAIN
     Route: 048
     Dates: start: 20000712, end: 20030901
  2. VIOXX [Suspect]
     Indication: PAIN
     Route: 048
     Dates: start: 20000712, end: 20030901
  3. DILTIAZEM HYDROCHLORIDE [Concomitant]
     Route: 065
  4. OXYCODONE HYDROCHLORIDE [Concomitant]
     Route: 065
     Dates: start: 20000712
  5. POLYETHYLENE GLYCOL 3350 AND POTASSIUM CHLORIDE AND SODIUM BICARBONATE [Concomitant]
     Route: 065
     Dates: start: 20021213

REACTIONS (19)
  - ANAEMIA [None]
  - ANAL FISTULA [None]
  - ATRIAL FIBRILLATION [None]
  - CAROTID ARTERY STENOSIS [None]
  - CORONARY ARTERY DISEASE [None]
  - DEHYDRATION [None]
  - EXTRASYSTOLES [None]
  - HAEMORRHOIDS [None]
  - INTERVERTEBRAL DISC DEGENERATION [None]
  - INTRACARDIAC THROMBUS [None]
  - LEFT VENTRICULAR FAILURE [None]
  - MITRAL VALVE INCOMPETENCE [None]
  - MYOCARDIAL INFARCTION [None]
  - PERIPHERAL OCCLUSIVE DISEASE [None]
  - POSTOPERATIVE INFECTION [None]
  - REACTIVE PSYCHOSIS [None]
  - RENAL FAILURE CHRONIC [None]
  - TRICUSPID VALVE INCOMPETENCE [None]
  - VARICOSE VEIN [None]
